FAERS Safety Report 18036595 (Version 3)
Quarter: 2020Q3

REPORT INFORMATION
  Report Type: Other
  Country: US (occurrence: US)
  Receive Date: 20200717
  Receipt Date: 20200805
  Transmission Date: 20201103
  Serious: Yes (Other)
  Sender: FDA-Public Use
  Company Number: US-ROCHE-2643249

PATIENT
  Sex: Female
  Weight: 124.85 kg

DRUGS (15)
  1. VENLAFAXINE [Concomitant]
     Active Substance: VENLAFAXINE HYDROCHLORIDE
     Indication: DEPRESSION
  2. VENLAFAXINE [Concomitant]
     Active Substance: VENLAFAXINE HYDROCHLORIDE
     Indication: ANXIETY
  3. MODAFINIL. [Concomitant]
     Active Substance: MODAFINIL
     Indication: ASTHENIA
  4. LOSARTAN/HCTZ [Concomitant]
     Active Substance: HYDROCHLOROTHIAZIDE\LOSARTAN
     Indication: HYPERTENSION
     Dosage: 100/25 MG STRENGTH
  5. FLUOXETINE [Concomitant]
     Active Substance: FLUOXETINE HYDROCHLORIDE
     Dosage: STARTED ON 02/06
     Route: 048
  6. VIT D [Concomitant]
     Active Substance: VITAMIN D NOS
     Indication: VITAMIN D DECREASED
  7. CRESTOR [Concomitant]
     Active Substance: ROSUVASTATIN CALCIUM
     Indication: BLOOD CHOLESTEROL INCREASED
  8. OCREVUS [Suspect]
     Active Substance: OCRELIZUMAB
     Route: 042
     Dates: start: 2018
  9. FLUTICASONE PROPIONATE. [Concomitant]
     Active Substance: FLUTICASONE PROPIONATE
     Dosage: ACT SUSPENSION STARTED ON 02/28
  10. FAMOTIDINE. [Concomitant]
     Active Substance: FAMOTIDINE
     Dosage: STARTED ON 03/22
     Route: 048
  11. BACLOFEN. [Concomitant]
     Active Substance: BACLOFEN
     Indication: MUSCLE SPASMS
     Dosage: TAKEN AT BEDTIME
  12. ONDANSETRON [Concomitant]
     Active Substance: ONDANSETRON
     Dosage: STARTED ON 09/06
     Route: 048
  13. ROSUVASTATIN CALCIUM. [Concomitant]
     Active Substance: ROSUVASTATIN CALCIUM
     Dosage: STARTED ON 01/21
     Route: 048
  14. OCREVUS [Suspect]
     Active Substance: OCRELIZUMAB
     Indication: RELAPSING-REMITTING MULTIPLE SCLEROSIS
     Dosage: DATES OF TREATMENT: 12/SEP/2018, 14/FEB/2019, 01/AUG/2019, 31/AUG/2019, 09/JAN/2020, 14/JAN/2020 AND
     Route: 042
  15. CLONAZEPAM. [Suspect]
     Active Substance: CLONAZEPAM
     Indication: MUSCLE SPASMS
     Dosage: TAKEN AT BEDTIME ; ONGOING: YES , STARTED ON 04/03
     Route: 048

REACTIONS (6)
  - Herpes zoster [Recovered/Resolved]
  - Vitamin D deficiency [Unknown]
  - Intentional product use issue [Unknown]
  - Varicella [Recovered/Resolved with Sequelae]
  - Anaemia vitamin B12 deficiency [Unknown]
  - Off label use [Unknown]

NARRATIVE: CASE EVENT DATE: 2019
